FAERS Safety Report 5915828-6 (Version None)
Quarter: 2008Q4

REPORT INFORMATION
  Report Type: 
  Country: None (occurrence: None)
  Receive Date: 20081010
  Receipt Date: 20081002
  Transmission Date: 20090506
  Serious: Yes (Hospitalization)
  Sender: FDA-Public Use
  Company Number: AR-ABBOTT-08P-007-0479974-00

PATIENT
  Sex: Female
  Weight: 70 kg

DRUGS (7)
  1. RITONAVIR SOFT GELATIN CAPSULES [Suspect]
     Indication: HIV INFECTION
     Route: 048
     Dates: start: 20060521, end: 20060718
  2. RITONAVIR SOFT GELATIN CAPSULES [Suspect]
     Route: 048
     Dates: start: 20060726
  3. TMC-114 [Concomitant]
     Indication: HIV INFECTION
     Route: 048
     Dates: start: 20060531, end: 20060718
  4. TMC-114 [Concomitant]
     Route: 048
     Dates: start: 20060726
  5. TRUVADA [Concomitant]
     Indication: HIV INFECTION
     Route: 048
     Dates: start: 20060531, end: 20060718
  6. TRUVADA [Concomitant]
     Route: 048
     Dates: start: 20060726
  7. ENALAPRIL MALEATE [Concomitant]
     Indication: HYPERTENSION

REACTIONS (2)
  - IMMUNE RECONSTITUTION SYNDROME [None]
  - PROGRESSIVE MULTIFOCAL LEUKOENCEPHALOPATHY [None]
